FAERS Safety Report 14939407 (Version 3)
Quarter: 2018Q2

REPORT INFORMATION
  Report Type: Spontaneous
  Country: US (occurrence: US)
  Receive Date: 20180525
  Receipt Date: 20180628
  Transmission Date: 20180711
  Serious: No
  Sender: FDA-Public Use
  Company Number: US-JNJFOC-20180506408

PATIENT
  Age: 28 Year
  Sex: Male
  Weight: 76 kg

DRUGS (10)
  1. DILAUDID [Concomitant]
     Active Substance: HYDROMORPHONE HYDROCHLORIDE
     Route: 048
     Dates: start: 20180508
  2. IRON FERROUS SULFATE [Concomitant]
     Route: 048
  3. VITAMIN B12 [Concomitant]
     Active Substance: CYANOCOBALAMIN
     Route: 048
  4. CALTRATE 600+D [Concomitant]
     Route: 048
  5. COLACE [Concomitant]
     Active Substance: DOCUSATE SODIUM
     Route: 048
     Dates: start: 20180327
  6. PREVACID [Concomitant]
     Active Substance: LANSOPRAZOLE
     Dosage: EVERY MORNING (BEFORE BREAKFAST)
     Route: 048
  7. PRAMOXINE/HYDROCORTISONE [Concomitant]
     Dosage: EVERY MORNING (BEFORE BREAKFAST)
     Route: 054
     Dates: start: 20180320
  8. MARINOL [Concomitant]
     Active Substance: DRONABINOL
     Route: 048
     Dates: start: 20180327
  9. MIRALAX [Concomitant]
     Active Substance: POLYETHYLENE GLYCOL 3350
     Dosage: EVERY MORNING (BEFORE BREAKFAST)
     Route: 048
     Dates: start: 20180327
  10. STELARA [Suspect]
     Active Substance: USTEKINUMAB
     Indication: CROHN^S DISEASE
     Route: 058
     Dates: start: 20161216

REACTIONS (6)
  - Drug ineffective [Unknown]
  - Product use issue [Unknown]
  - Poor quality drug administered [Unknown]
  - Frequent bowel movements [Unknown]
  - Liquid product physical issue [Unknown]
  - Off label use [Unknown]

NARRATIVE: CASE EVENT DATE: 20161216
